FAERS Safety Report 13071334 (Version 2)
Quarter: 2017Q1

REPORT INFORMATION
  Report Type: Report from Study
  Country: US (occurrence: US)
  Receive Date: 20161229
  Receipt Date: 20170206
  Transmission Date: 20170428
  Serious: Yes (Other)
  Sender: FDA-Public Use
  Company Number: US-AMGEN-USASL2016183448

PATIENT
  Sex: Female

DRUGS (2)
  1. MEDROL [Concomitant]
     Active Substance: METHYLPREDNISOLONE
  2. ENBREL [Suspect]
     Active Substance: ETANERCEPT
     Indication: RHEUMATOID ARTHRITIS
     Dosage: 50 MG, WEEKLY
     Route: 065

REACTIONS (9)
  - Oropharyngeal pain [Unknown]
  - Chondritis [Unknown]
  - Pneumonia [Unknown]
  - Acute sinusitis [Unknown]
  - Haematocrit decreased [Unknown]
  - Pleurisy [Unknown]
  - Pain [Unknown]
  - Drug dose omission [Unknown]
  - Headache [Unknown]
